FAERS Safety Report 16278359 (Version 2)
Quarter: 2019Q4

REPORT INFORMATION
  Report Type: Spontaneous
  Country: US (occurrence: US)
  Receive Date: 20190506
  Receipt Date: 20191203
  Transmission Date: 20200122
  Serious: Yes (Other)
  Sender: FDA-Public Use
  Company Number: US-ASTRAZENECA-2019SE10791

PATIENT
  Age: 60 Year
  Sex: Male
  Weight: 64 kg

DRUGS (14)
  1. NEXIUM [Suspect]
     Active Substance: ESOMEPRAZOLE MAGNESIUM
     Indication: GASTROOESOPHAGEAL REFLUX DISEASE
     Route: 065
     Dates: start: 2018
  2. NEXIUM [Suspect]
     Active Substance: ESOMEPRAZOLE MAGNESIUM
     Indication: GASTROOESOPHAGEAL REFLUX DISEASE
     Route: 048
     Dates: start: 20070101, end: 20180730
  3. NEXIUM [Suspect]
     Active Substance: ESOMEPRAZOLE MAGNESIUM
     Indication: GASTROOESOPHAGEAL REFLUX DISEASE
     Route: 048
     Dates: start: 20120702
  4. NEXIUM [Suspect]
     Active Substance: ESOMEPRAZOLE MAGNESIUM
     Indication: GASTROOESOPHAGEAL REFLUX DISEASE
     Route: 048
     Dates: start: 2012, end: 2015
  5. RENAGEL [Concomitant]
     Active Substance: SEVELAMER HYDROCHLORIDE
  6. LISINOPRIL. [Concomitant]
     Active Substance: LISINOPRIL
  7. CARVEDILOL. [Concomitant]
     Active Substance: CARVEDILOL
  8. BENZONATATE. [Concomitant]
     Active Substance: BENZONATATE
  9. COUMADIN [Concomitant]
     Active Substance: WARFARIN SODIUM
  10. PANCRON [Concomitant]
  11. AZITHROMYCIN ANHYDROUS. [Concomitant]
     Active Substance: AZITHROMYCIN ANHYDROUS
  12. CIPROFLOXACIN. [Concomitant]
     Active Substance: CIPROFLOXACIN
  13. ASPIRIN. [Concomitant]
     Active Substance: ASPIRIN
  14. ISOSORBIDE DINITRATE. [Concomitant]
     Active Substance: ISOSORBIDE DINITRATE

REACTIONS (6)
  - Chronic kidney disease [Unknown]
  - Hyperparathyroidism secondary [Unknown]
  - Rebound acid hypersecretion [Unknown]
  - Renal failure [Unknown]
  - Nephrogenic anaemia [Unknown]
  - End stage renal disease [Unknown]

NARRATIVE: CASE EVENT DATE: 2008
